FAERS Safety Report 7382602-6 (Version None)
Quarter: 2011Q1

REPORT INFORMATION
  Report Type: 
  Country: None (occurrence: None)
  Receive Date: 20110329
  Receipt Date: 20110310
  Transmission Date: 20110831
  Serious: Yes (Other)
  Sender: FDA-Public Use
  Company Number: US-BAYER-201035760NA

PATIENT
  Sex: Female
  Weight: 63 kg

DRUGS (11)
  1. OCELLA [Suspect]
     Indication: PRODUCT USED FOR UNKNOWN INDICATION
     Route: 048
     Dates: start: 20080701, end: 20090801
  2. BUPROPION HYDROCHLORIDE [Concomitant]
  3. IMURAN [Concomitant]
  4. IRON [IRON] [Concomitant]
  5. VITAMIN B12 NOS [Concomitant]
  6. PANTOPRAZOLE SODIUM [Concomitant]
  7. YASMIN [Suspect]
     Indication: PRODUCT USED FOR UNKNOWN INDICATION
     Dosage: UNK UNK, UNK
     Route: 048
     Dates: start: 20080701
  8. YAZ [Suspect]
     Indication: PRODUCT USED FOR UNKNOWN INDICATION
     Dosage: UNK
  9. LORAZEPAM [Concomitant]
  10. XYZAL [Concomitant]
  11. NIFEREX [POLYSACCHARIDE-IRON COMPLEX] [Concomitant]

REACTIONS (3)
  - CHOLELITHIASIS [None]
  - GALLBLADDER DISORDER [None]
  - CHOLECYSTITIS ACUTE [None]
